FAERS Safety Report 7343243-X (Version None)
Quarter: 2011Q1

REPORT INFORMATION
  Report Type: 
  Country: None (occurrence: None)
  Receive Date: 20110310
  Receipt Date: 20110303
  Transmission Date: 20110831
  Serious: Yes (Hospitalization, Other)
  Sender: FDA-Public Use
  Company Number: US-ROXANE LABORATORIES, INC.-2011-RO-00255RO

PATIENT
  Age: 44 Year
  Sex: Female

DRUGS (5)
  1. LISINOPRIL [Suspect]
  2. SODIUM POLYSTYRENE SULFONATE [Suspect]
     Indication: HYPERKALAEMIA
  3. SPIRONOLACTONE [Suspect]
  4. FUROSEMIDE [Suspect]
  5. NARCOTIC MEDICATIONS [Concomitant]
     Indication: BACK PAIN

REACTIONS (4)
  - DIARRHOEA [None]
  - HYPERNATRAEMIA [None]
  - RENAL FAILURE ACUTE [None]
  - DEHYDRATION [None]
